FAERS Safety Report 12762789 (Version 1)
Quarter: 2016Q3

REPORT INFORMATION
  Report Type: Spontaneous
  Country: DE (occurrence: DE)
  Receive Date: 20160920
  Receipt Date: 20160920
  Transmission Date: 20161109
  Serious: Yes (Other)
  Sender: FDA-Public Use
  Company Number: DE-BAYER-2016-180644

PATIENT
  Sex: Female

DRUGS (1)
  1. AVALOX [Suspect]
     Active Substance: MOXIFLOXACIN HYDROCHLORIDE
     Indication: PLEURISY
     Dosage: 400 MG, UNK
     Dates: start: 201602

REACTIONS (1)
  - Anosmia [None]
